FAERS Safety Report 21230169 (Version 2)
Quarter: 2022Q3

REPORT INFORMATION
  Report Type: Spontaneous
  Country: US (occurrence: US)
  Receive Date: 20220818
  Receipt Date: 20220911
  Transmission Date: 20221027
  Serious: No
  Sender: FDA-Public Use
  Company Number: US-SA-SAC20220817000666

PATIENT
  Age: 46 Year
  Sex: Female

DRUGS (1)
  1. DUPIXENT [Suspect]
     Active Substance: DUPILUMAB
     Dosage: 300MG, OTHER
     Route: 058
     Dates: start: 202206

REACTIONS (8)
  - Injection site haemorrhage [Unknown]
  - Myalgia [Unknown]
  - Injection site irritation [Unknown]
  - Pruritus [Unknown]
  - Injection site pain [Unknown]
  - Injection site swelling [Unknown]
  - Therapeutic response decreased [Unknown]
  - Product preparation error [Unknown]

NARRATIVE: CASE EVENT DATE: 20220101
